FAERS Safety Report 25615656 (Version 1)
Quarter: 2025Q3

REPORT INFORMATION
  Report Type: Spontaneous
  Country: EU (occurrence: EU)
  Receive Date: 20250729
  Receipt Date: 20250729
  Transmission Date: 20251021
  Serious: Yes (Hospitalization)
  Sender: AMGEN
  Company Number: EU-AMGEN-FRASP2025146929

PATIENT
  Sex: Male

DRUGS (2)
  1. OTEZLA [Suspect]
     Active Substance: APREMILAST
     Indication: Psoriasis
     Route: 065
     Dates: start: 2023
  2. OTEZLA [Suspect]
     Active Substance: APREMILAST
     Route: 065
     Dates: start: 20250721

REACTIONS (2)
  - Sarcoidosis [Not Recovered/Not Resolved]
  - Asthenia [Not Recovered/Not Resolved]
